FAERS Safety Report 7293591-7 (Version None)
Quarter: 2011Q1

REPORT INFORMATION
  Report Type: 
  Country: None (occurrence: None)
  Receive Date: 20110215
  Receipt Date: 20110211
  Transmission Date: 20110831
  Serious: Yes (Hospitalization)
  Sender: FDA-Public Use
  Company Number: A0699368A

PATIENT
  Age: 64 Year
  Sex: Female
  Weight: 97.7 kg

DRUGS (3)
  1. AVANDIA [Suspect]
     Indication: DIABETES MELLITUS
     Dosage: 4MG PER DAY
     Route: 048
     Dates: start: 20010101, end: 20061016
  2. LIPITOR [Concomitant]
  3. GLUCOVANCE [Concomitant]

REACTIONS (4)
  - CARDIAC FAILURE CONGESTIVE [None]
  - ANGINA UNSTABLE [None]
  - MYOCARDIAL INFARCTION [None]
  - HEART INJURY [None]
